FAERS Safety Report 5825303-5 (Version None)
Quarter: 2008Q3

REPORT INFORMATION
  Report Type: 
  Country: None (occurrence: None)
  Receive Date: 20080729
  Receipt Date: 20080414
  Transmission Date: 20090109
  Serious: No
  Sender: FDA-Public Use
  Company Number: US-BAYER-200811464BCC

PATIENT
  Sex: Female

DRUGS (2)
  1. FINACEA [Suspect]
     Indication: ROSACEA
     Route: 061
     Dates: start: 20080226, end: 20080314
  2. ORACEA [Concomitant]

REACTIONS (3)
  - ERYTHEMA [None]
  - PAIN OF SKIN [None]
  - SKIN WARM [None]
